FAERS Safety Report 4478259-4 (Version None)
Quarter: 2004Q4

REPORT INFORMATION
  Report Type: 
  Country: None (occurrence: None)
  Receive Date: 20041018
  Receipt Date: 20041018
  Transmission Date: 20050328
  Serious: No
  Sender: FDA-Public Use
  Company Number: None

PATIENT
  Age: 50 Year
  Sex: Female
  Weight: 85.7298 kg

DRUGS (2)
  1. ORTHO EVRA [Suspect]
     Indication: CONTRACEPTION
     Dosage: 1 PATCH Q WK
     Dates: start: 20040302
  2. ORTHO EVRA [Suspect]
     Indication: CONTRACEPTION
     Dosage: 1 PATCH Q WK
     Dates: start: 20040401

REACTIONS (4)
  - ERYTHEMA [None]
  - JOINT SWELLING [None]
  - PAIN IN EXTREMITY [None]
  - THROMBOSIS [None]
